FAERS Safety Report 4428258-3 (Version None)
Quarter: 2004Q3

REPORT INFORMATION
  Report Type: 
  Country: None (occurrence: None)
  Receive Date: 20040813
  Receipt Date: 20040209
  Transmission Date: 20050211
  Serious: Yes (Other)
  Sender: FDA-Public Use
  Company Number: M2004.1043

PATIENT
  Age: 67 Year
  Sex: Male
  Weight: 70 kg

DRUGS (3)
  1. AMOXICILLIN [Suspect]
     Indication: PROPHYLAXIS
     Dosage: 3 G
  2. ASPIRIN [Concomitant]
  3. GAVISCON [Concomitant]

REACTIONS (2)
  - KIDNEY INFECTION [None]
  - URETHRITIS [None]
